FAERS Safety Report 21010844 (Version 1)
Quarter: 2022Q3

REPORT INFORMATION
  Report Type: Spontaneous
  Country: PK (occurrence: PK)
  Receive Date: 20220627
  Receipt Date: 20220627
  Transmission Date: 20221027
  Serious: Yes (Other)
  Sender: FDA-Public Use
  Company Number: PK-NOVARTISPH-NVSC2022PK142956

PATIENT

DRUGS (1)
  1. SIMULECT [Suspect]
     Active Substance: BASILIXIMAB
     Indication: Renal transplant
     Dosage: 20 MG (DAY 0 AND DAY 4 POST TRANSPLANT)
     Route: 042

REACTIONS (1)
  - Transplant rejection [Not Recovered/Not Resolved]
